FAERS Safety Report 6070810-6 (Version None)
Quarter: 2009Q1

REPORT INFORMATION
  Report Type: 
  Country: None (occurrence: None)
  Receive Date: 20090209
  Receipt Date: 20080721
  Transmission Date: 20090719
  Serious: No
  Sender: FDA-Public Use
  Company Number: A0738630A

PATIENT
  Age: 64 Year
  Sex: Female

DRUGS (3)
  1. PAROXETINE HCL [Suspect]
     Dosage: 30MG PER DAY
     Route: 048
     Dates: start: 20080401
  2. PROGESTERONE [Concomitant]
  3. XANAX [Concomitant]

REACTIONS (3)
  - MUSCLE TWITCHING [None]
  - NAUSEA [None]
  - VISION BLURRED [None]
